FAERS Safety Report 24629787 (Version 1)
Quarter: 2024Q4

REPORT INFORMATION
  Report Type: Spontaneous
  Country: JP (occurrence: JP)
  Receive Date: 20241118
  Receipt Date: 20241118
  Transmission Date: 20250114
  Serious: Yes (Hospitalization)
  Sender: STRIDES
  Company Number: JP-STRIDES ARCOLAB LIMITED-2024SP014786

PATIENT
  Age: 68 Year
  Sex: Male
  Weight: 55.5 kg

DRUGS (28)
  1. CLARITHROMYCIN [Interacting]
     Active Substance: CLARITHROMYCIN
     Indication: Mycobacterium avium complex infection
     Dosage: 400 MILLIGRAM, BID
     Route: 048
  2. CLARITHROMYCIN [Interacting]
     Active Substance: CLARITHROMYCIN
     Indication: Lung disorder
     Dosage: UNK, RESTARTED
     Route: 065
  3. CLARITHROMYCIN [Interacting]
     Active Substance: CLARITHROMYCIN
     Dosage: UNK, RESTARTED
     Route: 065
  4. EDOXABAN TOSYLATE [Interacting]
     Active Substance: EDOXABAN TOSYLATE
     Indication: Thrombosis prophylaxis
     Dosage: 1 DOSAGE FORM, OD (AFTER BREAKFAST) (STRENGTH 60 MG)
     Route: 048
  5. EDOXABAN TOSYLATE [Interacting]
     Active Substance: EDOXABAN TOSYLATE
     Dosage: UNK
     Route: 065
  6. EDOXABAN TOSYLATE [Interacting]
     Active Substance: EDOXABAN TOSYLATE
     Dosage: 1 DOSAGE FORM, OD (STRENGTH 30 MG)
     Route: 048
  7. RIFAMPIN [Interacting]
     Active Substance: RIFAMPIN
     Indication: Mycobacterium avium complex infection
     Dosage: 450 MILLIGRAM, OD (AFTER BREAKFAST)
     Route: 048
  8. RIFAMPIN [Interacting]
     Active Substance: RIFAMPIN
     Indication: Lung disorder
     Dosage: UNK, RESTARTED
     Route: 065
  9. RIFAMPIN [Interacting]
     Active Substance: RIFAMPIN
     Dosage: UNK, RESTARTED
     Route: 065
  10. VALSARTAN [Interacting]
     Active Substance: VALSARTAN
     Indication: Product used for unknown indication
     Dosage: 80 MILLIGRAM, QD
     Route: 048
  11. VALSARTAN [Interacting]
     Active Substance: VALSARTAN
     Dosage: UNK, RESTARTED
     Route: 065
  12. ETHAMBUTOL [Suspect]
     Active Substance: ETHAMBUTOL HYDROCHLORIDE
     Indication: Mycobacterium avium complex infection
     Dosage: 750 MILLIGRAM, QD
     Route: 048
  13. ETHAMBUTOL [Suspect]
     Active Substance: ETHAMBUTOL HYDROCHLORIDE
     Indication: Lung disorder
     Dosage: UNK, RESTARTED
     Route: 065
  14. ETHAMBUTOL [Suspect]
     Active Substance: ETHAMBUTOL HYDROCHLORIDE
     Dosage: UNK, RESTARTED
     Route: 065
  15. BISOPROLOL [Suspect]
     Active Substance: BISOPROLOL
     Indication: Product used for unknown indication
     Dosage: 2.5 MILLIGRAM, QD
     Route: 048
  16. BISOPROLOL [Suspect]
     Active Substance: BISOPROLOL
     Dosage: UNK
     Route: 065
  17. FENOFIBRATE [Suspect]
     Active Substance: FENOFIBRATE
     Indication: Product used for unknown indication
     Dosage: 160 MILLIGRAM, QD
     Route: 048
  18. FENOFIBRATE [Suspect]
     Active Substance: FENOFIBRATE
     Dosage: UNK
     Route: 065
  19. NIFEDIPINE [Suspect]
     Active Substance: NIFEDIPINE
     Indication: Product used for unknown indication
     Dosage: 40 MILLIGRAM, QD
     Route: 048
  20. NIFEDIPINE [Suspect]
     Active Substance: NIFEDIPINE
     Dosage: UNK
     Route: 065
  21. TEPRENONE [Suspect]
     Active Substance: TEPRENONE
     Indication: Product used for unknown indication
     Dosage: 50 MILLIGRAM, QD
     Route: 048
  22. TEPRENONE [Suspect]
     Active Substance: TEPRENONE
     Dosage: UNK
     Route: 065
  23. LANSOPRAZOLE [Suspect]
     Active Substance: LANSOPRAZOLE
     Indication: Product used for unknown indication
     Dosage: 15 MILLIGRAM, QD
     Route: 048
  24. LANSOPRAZOLE [Suspect]
     Active Substance: LANSOPRAZOLE
     Dosage: UNK
     Route: 065
  25. PANCRELIPASE [Suspect]
     Active Substance: PANCRELIPASE
     Indication: Product used for unknown indication
     Dosage: 450 MILLIGRAM, QD
     Route: 048
  26. PANCRELIPASE [Suspect]
     Active Substance: PANCRELIPASE
     Dosage: UNK
     Route: 065
  27. ACOTIAMIDE [Suspect]
     Active Substance: ACOTIAMIDE
     Indication: Product used for unknown indication
     Dosage: 300 MILLIGRAM, QD
     Route: 048
  28. ACOTIAMIDE [Suspect]
     Active Substance: ACOTIAMIDE
     Dosage: UNK
     Route: 065

REACTIONS (4)
  - Drug interaction [Unknown]
  - Impaired gastric emptying [Unknown]
  - Haemorrhage subcutaneous [Unknown]
  - Pulmonary haemorrhage [Unknown]
